FAERS Safety Report 15724890 (Version 2)
Quarter: 2019Q1

REPORT INFORMATION
  Report Type: Spontaneous
  Country: US (occurrence: US)
  Receive Date: 20181214
  Receipt Date: 20190313
  Transmission Date: 20190417
  Serious: No
  Sender: FDA-Public Use
  Company Number: US-LUNDBECK-DKLU2058225

PATIENT
  Age: 88 Year
  Sex: Male
  Weight: 72.6 kg

DRUGS (1)
  1. NORTHERA [Suspect]
     Active Substance: DROXIDOPA
     Indication: AUTONOMIC NEUROPATHY
     Route: 048
     Dates: start: 20161005

REACTIONS (6)
  - Oropharyngeal pain [Unknown]
  - Dysphonia [Unknown]
  - Asthenia [Unknown]
  - Gait disturbance [Unknown]
  - Presyncope [Unknown]
  - Fall [Unknown]

NARRATIVE: CASE EVENT DATE: 20181210
